FAERS Safety Report 6142607-X (Version None)
Quarter: 2009Q2

REPORT INFORMATION
  Report Type: 
  Country: None (occurrence: None)
  Receive Date: 20090403
  Receipt Date: 20090325
  Transmission Date: 20091009
  Serious: Yes (Hospitalization)
  Sender: FDA-Public Use
  Company Number: CH-PURDUE-DEU_2009_0005132

PATIENT

DRUGS (1)
  1. MORPHINE SULFATE CR CAPSULE DAILY [Suspect]
     Indication: DRUG DEPENDENCE
     Route: 048

REACTIONS (1)
  - PAIN IN EXTREMITY [None]
